FAERS Safety Report 8955407 (Version 2)
Quarter: 2013Q3

REPORT INFORMATION
  Report Type: Report from Study
  Country: GB (occurrence: GB)
  Receive Date: 20121207
  Receipt Date: 20130726
  Transmission Date: 20140515
  Serious: Yes (Other)
  Sender: FDA-Public Use
  Company Number: GB-ROCHE-1165270

PATIENT
  Age: 66 Year
  Sex: Male
  Weight: 76 kg

DRUGS (1)
  1. RITUXIMAB [Suspect]
     Indication: RHEUMATOID ARTHRITIS
     Route: 065
     Dates: start: 20080205

REACTIONS (2)
  - Skin cancer [Unknown]
  - Carcinoma in situ of skin [Unknown]
